FAERS Safety Report 25026125 (Version 2)
Quarter: 2025Q2

REPORT INFORMATION
  Report Type: Spontaneous
  Country: JP (occurrence: JP)
  Receive Date: 20250301
  Receipt Date: 20250405
  Transmission Date: 20250717
  Serious: Yes (Death, Other)
  Sender: UNITED THERAPEUTICS
  Company Number: JP-UNITED THERAPEUTICS-UNT-2025-007051

PATIENT
  Age: 80 Year
  Sex: Male

DRUGS (2)
  1. TYVASO [Suspect]
     Active Substance: TREPROSTINIL
     Indication: Pulmonary hypertension
  2. TYVASO [Suspect]
     Active Substance: TREPROSTINIL
     Indication: Chronic obstructive pulmonary disease

REACTIONS (3)
  - Pulmonary hypertension [Fatal]
  - Chronic obstructive pulmonary disease [Unknown]
  - Off label use [Unknown]

NARRATIVE: CASE EVENT DATE: 20241210
